FAERS Safety Report 14940910 (Version 2)
Quarter: 2018Q3

REPORT INFORMATION
  Report Type: Report from Study
  Country: US (occurrence: US)
  Receive Date: 20180525
  Receipt Date: 20180730
  Transmission Date: 20181010
  Serious: Yes (Disabling, Other)
  Sender: FDA-Public Use
  Company Number: US-REGENERON PHARMACEUTICALS, INC.-2016-22502

PATIENT

DRUGS (2)
  1. EYLEA [Suspect]
     Active Substance: AFLIBERCEPT
     Indication: NEOVASCULAR AGE-RELATED MACULAR DEGENERATION
     Dosage: 0.05 ML, EVERY 4 WEEKS, OS
     Route: 031
     Dates: start: 20161107
  2. EYLEA [Suspect]
     Active Substance: AFLIBERCEPT
     Dosage: 0.05 ML, EVERY 4 WEEKS, OS, LAST DOSE PRIOR EVENTS
     Route: 031
     Dates: start: 20161107

REACTIONS (4)
  - Visual impairment [Unknown]
  - Blindness transient [Recovered/Resolved]
  - Endophthalmitis [Not Recovered/Not Resolved]
  - Uveitis [Recovered/Resolved]

NARRATIVE: CASE EVENT DATE: 20180219
